FAERS Safety Report 4972498-1 (Version None)
Quarter: 2006Q2

REPORT INFORMATION
  Report Type: 
  Country: None (occurrence: None)
  Receive Date: 20060413
  Receipt Date: 20060404
  Transmission Date: 20061013
  Serious: Yes (Hospitalization)
  Sender: FDA-Public Use
  Company Number: FR-MERCK-0604FRA00006

PATIENT
  Age: 79 Year
  Sex: Female

DRUGS (2)
  1. PRIMAXIN [Suspect]
     Route: 042
     Dates: start: 20060215, end: 20060219
  2. CIPROFLOXACIN [Suspect]
     Route: 048
     Dates: start: 20060215, end: 20060219

REACTIONS (5)
  - BLOOD GLUCOSE DECREASED [None]
  - CLONIC CONVULSION [None]
  - LOSS OF CONSCIOUSNESS [None]
  - MALAISE [None]
  - TONIC CONVULSION [None]
